FAERS Safety Report 10810674 (Version 1)
Quarter: 2015Q1

REPORT INFORMATION
  Report Type: Report from Study
  Country: US (occurrence: US)
  Receive Date: 20150217
  Receipt Date: 20150217
  Transmission Date: 20150721
  Serious: No
  Sender: FDA-Public Use
  Company Number: US-ABBVIE-14K-163-1269567-00

PATIENT
  Sex: Female
  Weight: 79.45 kg

DRUGS (1)
  1. HUMIRA [Suspect]
     Active Substance: ADALIMUMAB
     Indication: PSORIATIC ARTHROPATHY
     Route: 058

REACTIONS (7)
  - Hypophagia [Recovered/Resolved]
  - Weight decreased [Recovered/Resolved]
  - Pain in extremity [Not Recovered/Not Resolved]
  - Mycotic allergy [Recovered/Resolved]
  - Arthritis [Not Recovered/Not Resolved]
  - Retching [Recovered/Resolved]
  - Muscular weakness [Recovered/Resolved]

NARRATIVE: CASE EVENT DATE: 2013
